FAERS Safety Report 8760084 (Version 1)
Quarter: 2012Q4

REPORT INFORMATION
  Report Type: 
  Country: CN (occurrence: CN)
  Receive Date: 20120829
  Receipt Date: 20120829
  Transmission Date: 20130627
  Serious: Yes (Other)
  Sender: FDA-Public Use
  Company Number: CN-ROCHE-1107940

PATIENT
  Age: 1 Year
  Sex: Female
  Weight: 10 kg

DRUGS (4)
  1. ROCEPHIN [Suspect]
     Indication: UPPER RESPIRATORY TRACT INFECTION
     Route: 041
     Dates: start: 20110128, end: 20110206
  2. ROCEPHIN [Suspect]
     Indication: SEPSIS
  3. AMOXICILLIN SODIUM [Suspect]
     Indication: UPPER RESPIRATORY TRACT INFECTION
     Route: 041
     Dates: start: 20110128, end: 20110206
  4. AMOXICILLIN SODIUM [Suspect]
     Indication: SEPSIS

REACTIONS (3)
  - Hepatic function abnormal [Recovering/Resolving]
  - Aspartate aminotransferase increased [None]
  - Alanine aminotransferase increased [None]
